FAERS Safety Report 7162159-5 (Version None)
Quarter: 2010Q4

REPORT INFORMATION
  Report Type: 
  Country: None (occurrence: None)
  Receive Date: 20101215
  Receipt Date: 20090826
  Transmission Date: 20110411
  Serious: Yes (Hospitalization)
  Sender: FDA-Public Use
  Company Number: FR-PFIZER INC-2009259887

PATIENT
  Age: 60 Year

DRUGS (11)
  1. LYRICA [Suspect]
     Dosage: 75 MG, 2X/DAY
     Route: 048
     Dates: start: 20090326, end: 20090724
  2. CONTRAMAL [Suspect]
     Dosage: 100 MG, 2X/DAY
     Route: 048
     Dates: start: 20090511, end: 20090725
  3. TAMSULOSIN [Suspect]
     Dosage: 0.4 MG, 1X/DAY
     Route: 048
     Dates: start: 20090515, end: 20090725
  4. DIFFU K [Suspect]
     Dosage: UNK
     Route: 048
     Dates: start: 20090429, end: 20090725
  5. KARDEGIC [Concomitant]
  6. PRAVASTATIN SODIUM [Concomitant]
  7. RIVOTRIL [Concomitant]
  8. AMLOR [Concomitant]
  9. LANTUS [Concomitant]
  10. NOVONORM [Concomitant]
  11. PLAVIX [Concomitant]

REACTIONS (5)
  - EOSINOPHILIA [None]
  - PRURITUS [None]
  - RASH ERYTHEMATOUS [None]
  - RASH GENERALISED [None]
  - RASH PUSTULAR [None]
